FAERS Safety Report 15976091 (Version 3)
Quarter: 2019Q3

REPORT INFORMATION
  Report Type: Report from Study
  Country: US (occurrence: US)
  Receive Date: 20190218
  Receipt Date: 20190820
  Transmission Date: 20191004
  Serious: Yes (Hospitalization)
  Sender: FDA-Public Use
  Company Number: US-TAKEDA-2019TUS006346

PATIENT
  Age: 45 Year
  Sex: Male
  Weight: 65.7 kg

DRUGS (3)
  1. DICYCLOMINE                        /00068601/ [Concomitant]
     Active Substance: DICYCLOMINE HYDROCHLORIDE
     Indication: COLITIS ULCERATIVE
     Dosage: 20 MILLIGRAM, Q6HR
     Route: 048
     Dates: start: 20180608
  2. RISPERDAL [Concomitant]
     Active Substance: RISPERIDONE
     Indication: DEPERSONALISATION/DEREALISATION DISORDER
     Dosage: 5 MILLIGRAM, QOD
     Route: 048
     Dates: start: 20180926
  3. VEDOLIZUMAB [Suspect]
     Active Substance: VEDOLIZUMAB
     Indication: COLITIS ULCERATIVE
     Dosage: 300 MILLIGRAM
     Route: 042
     Dates: start: 20180712, end: 20181213

REACTIONS (1)
  - Colitis ulcerative [Unknown]

NARRATIVE: CASE EVENT DATE: 20190209
